FAERS Safety Report 18694264 (Version 1)
Quarter: 2021Q1

REPORT INFORMATION
  Report Type: Spontaneous
  Country: US (occurrence: US)
  Receive Date: 20210102
  Receipt Date: 20210102
  Transmission Date: 20210419
  Serious: Yes (Other)
  Sender: FDA-Public Use
  Company Number: None

PATIENT
  Age: 61 Year
  Sex: Male
  Weight: 108 kg

DRUGS (6)
  1. BAMLANIVIMAB. [Suspect]
     Active Substance: BAMLANIVIMAB
     Indication: COVID-19
     Route: 042
     Dates: start: 20201224, end: 20201224
  2. METFORMIN [Concomitant]
     Active Substance: METFORMIN HYDROCHLORIDE
  3. OLMESARTAN [Concomitant]
     Active Substance: OLMESARTAN
  4. ATORVASTATIN [Concomitant]
     Active Substance: ATORVASTATIN
  5. AMLODIPINE [Concomitant]
     Active Substance: AMLODIPINE BESYLATE
  6. MULTI VITAMIN [Concomitant]
     Active Substance: VITAMINS

REACTIONS (1)
  - Chills [None]

NARRATIVE: CASE EVENT DATE: 20201224
